FAERS Safety Report 7081968-4 (Version None)
Quarter: 2010Q4

REPORT INFORMATION
  Report Type: 
  Country: None (occurrence: None)
  Receive Date: 20101103
  Receipt Date: 20101028
  Transmission Date: 20110411
  Serious: Yes (Hospitalization)
  Sender: FDA-Public Use
  Company Number: GB-PFIZER INC-2010137914

PATIENT
  Age: 66 Year
  Sex: Female

DRUGS (2)
  1. METRONIDAZOLE [Suspect]
     Indication: TOOTH ABSCESS
     Dosage: 200 MG, UNK
     Route: 048
     Dates: start: 20100804, end: 20100826
  2. SALBUTAMOL [Concomitant]

REACTIONS (1)
  - EPILEPSY [None]
